FAERS Safety Report 8284693-7 (Version None)
Quarter: 2012Q2

REPORT INFORMATION
  Report Type: 
  Country: None (occurrence: None)
  Receive Date: 20120413
  Receipt Date: 20110420
  Transmission Date: 20120825
  Serious: No
  Sender: FDA-Public Use
  Company Number: US-ASTRAZENECA-2011SE23734

PATIENT
  Sex: Female

DRUGS (1)
  1. NEXIUM [Suspect]
     Indication: GASTROOESOPHAGEAL REFLUX DISEASE
     Route: 048

REACTIONS (6)
  - COUGH [None]
  - WHEEZING [None]
  - DRUG DOSE OMISSION [None]
  - DYSPHONIA [None]
  - THROAT TIGHTNESS [None]
  - GASTROOESOPHAGEAL REFLUX DISEASE [None]
